FAERS Safety Report 24159558 (Version 1)
Quarter: 2024Q3

REPORT INFORMATION
  Report Type: Report from Study
  Country: US (occurrence: US)
  Receive Date: 20240731
  Receipt Date: 20240731
  Transmission Date: 20241016
  Serious: No
  Sender: AURINIA PHARMACEUTICALS
  Company Number: US-AURINIA PHARMACEUTICALS INC.-AUR-005741

PATIENT
  Age: 39 Year
  Sex: Female
  Weight: 63.2 kg

DRUGS (10)
  1. LUPKYNIS [Suspect]
     Active Substance: VOCLOSPORIN
     Indication: Lupus nephritis
     Dosage: 23.7 MILLIGRAM, BID
     Route: 048
     Dates: start: 20240207, end: 20240408
  2. LUPKYNIS [Suspect]
     Active Substance: VOCLOSPORIN
     Dosage: 23.7 MILLIGRAM, BID
     Route: 048
     Dates: start: 20240425
  3. BENLYSTA [Concomitant]
     Active Substance: BELIMUMAB
     Indication: Systemic lupus erythematosus
     Dosage: 200 MILLIGRAM, ONCE WEEKLY
     Route: 058
     Dates: start: 20221026
  4. HYDROXYCHLOROQUINE [Concomitant]
     Active Substance: HYDROXYCHLOROQUINE
     Indication: Systemic lupus erythematosus
     Dosage: 400 MILLIGRAM, QD
     Dates: start: 20200504
  5. FAMOTIDINE [Concomitant]
     Active Substance: FAMOTIDINE
     Indication: Gastrooesophageal reflux disease
     Dosage: 20 MILLIGRAM, BID
     Dates: start: 20231107
  6. FUROSEMIDE [Concomitant]
     Active Substance: FUROSEMIDE
     Indication: Cardiac failure congestive
     Dosage: 80 MILLIGRAM, QD
     Dates: start: 20140110
  7. LOSARTAN [Concomitant]
     Active Substance: LOSARTAN
     Indication: Hypertension
     Dosage: 100 MILLIGRAM, QD
     Dates: start: 20220316
  8. MYCOPHENOLIC ACID [Concomitant]
     Active Substance: MYCOPHENOLIC ACID
     Indication: Lupus nephritis
     Dosage: 1500 MILLIGRAM, BID
     Dates: start: 20201029
  9. OMEPRAZOLE [Concomitant]
     Active Substance: OMEPRAZOLE
     Indication: Gastrooesophageal reflux disease
     Dosage: 20 MILLIGRAM, QD
     Dates: start: 20200504
  10. XARELTO [Concomitant]
     Active Substance: RIVAROXABAN
     Indication: Thrombosis prophylaxis
     Dosage: 20 MILLIGRAM, QD
     Dates: start: 20221207

REACTIONS (5)
  - Rash [Recovered/Resolved]
  - Contusion [Unknown]
  - Peripheral swelling [Unknown]
  - Pain in extremity [Unknown]
  - Fatigue [Unknown]

NARRATIVE: CASE EVENT DATE: 20240406
